FAERS Safety Report 5176385-8 (Version None)
Quarter: 2006Q4

REPORT INFORMATION
  Report Type: 
  Country: None (occurrence: None)
  Receive Date: 20061206
  Receipt Date: 20061122
  Transmission Date: 20070319
  Serious: Yes (Life-Threatening, Hospitalization)
  Sender: FDA-Public Use
  Company Number: 230331

PATIENT
  Age: 54 Year
  Sex: Male
  Weight: 61 kg

DRUGS (10)
  1. BEVACIZUMAB (BEVACIZUMAB) [Suspect]
     Indication: PANCREATIC CARCINOMA METASTATIC
     Dosage: 300 MG, Q2W, INTRAVENOUS
     Route: 042
     Dates: start: 20060907, end: 20060925
  2. ERLOTINIB (ERLOTINIB) TABLET, 100 MG [Suspect]
     Indication: PANCREATIC CARCINOMA METASTATIC
     Dosage: 100 MG, QD, ORAL
     Route: 048
     Dates: start: 20060907, end: 20060925
  3. GEMCITABINE [Suspect]
     Indication: PANCREATIC CARCINOMA METASTATIC
     Dosage: 1615 MG, 1/WEEK, INTRAVENOUS
     Route: 042
     Dates: start: 20060907, end: 20060925
  4. LAMIVUDINE [Concomitant]
  5. MAXOLON [Concomitant]
  6. PROCHLORPERAZINE [Concomitant]
  7. PANADOL (ACETAMINOPHEN) [Concomitant]
  8. TRAMADOL HCL [Concomitant]
  9. NEXIUM [Concomitant]
  10. LARGACTIL (CHLORPROMAZINE) [Concomitant]

REACTIONS (7)
  - DISSEMINATED INTRAVASCULAR COAGULATION [None]
  - EPISTAXIS [None]
  - ESCHERICHIA SEPSIS [None]
  - GINGIVAL BLEEDING [None]
  - HAEMATOCRIT DECREASED [None]
  - INFUSION RELATED REACTION [None]
  - URTICARIA [None]
